FAERS Safety Report 18579234 (Version 1)
Quarter: 2020Q4

REPORT INFORMATION
  Report Type: Spontaneous
  Country: US (occurrence: US)
  Receive Date: 20201202
  Receipt Date: 20201202
  Transmission Date: 20210114
  Serious: No
  Sender: FDA-Public Use
  Company Number: None

PATIENT
  Age: 58 Year
  Sex: Male
  Weight: 110.22 kg

DRUGS (1)
  1. ALOGLIPTIN (ALOGLLPTIN 25 MG TAB) [Suspect]
     Active Substance: ALOGLIPTIN
     Indication: DIABETES MELLITUS
     Route: 048
     Dates: start: 20200609, end: 20200610

REACTIONS (1)
  - Injection site mass [None]

NARRATIVE: CASE EVENT DATE: 20200609
